FAERS Safety Report 12373984 (Version 1)
Quarter: 2016Q2

REPORT INFORMATION
  Report Type: Spontaneous
  Country: US (occurrence: US)
  Receive Date: 20160517
  Receipt Date: 20160517
  Transmission Date: 20160815
  Serious: No
  Sender: FDA-Public Use
  Company Number: US-009507513-1605USA003641

PATIENT
  Age: 71 Year
  Sex: Female

DRUGS (6)
  1. ZOCOR [Concomitant]
     Active Substance: SIMVASTATIN
     Dosage: UNK
     Route: 048
  2. BELSOMRA [Suspect]
     Active Substance: SUVOREXANT
     Indication: SLEEP DISORDER THERAPY
     Dosage: 10 MG, QD
     Route: 048
     Dates: start: 201604, end: 2016
  3. LEXAPRO [Concomitant]
     Active Substance: ESCITALOPRAM OXALATE
     Dosage: 10 MG, QD
  4. ARIMIDEX [Concomitant]
     Active Substance: ANASTROZOLE
     Dosage: 20 MG, QD
  5. BELSOMRA [Suspect]
     Active Substance: SUVOREXANT
     Dosage: 20 MG, QD
     Route: 048
     Dates: start: 2016
  6. VALSARTAN. [Concomitant]
     Active Substance: VALSARTAN
     Dosage: UNK

REACTIONS (1)
  - Drug ineffective [Unknown]

NARRATIVE: CASE EVENT DATE: 201604
